FAERS Safety Report 11897670 (Version 2)
Quarter: 2016Q1

REPORT INFORMATION
  Report Type: Spontaneous
  Country: US (occurrence: None)
  Receive Date: 20160106
  Receipt Date: 20160115
  Transmission Date: 20160526
  Serious: Yes (Death, Other)
  Sender: FDA-Public Use
  Company Number: FR-ALSI-201600002

PATIENT
  Age: 25 Year
  Sex: Male

DRUGS (2)
  1. ALCOHOL. [Suspect]
     Active Substance: ALCOHOL
     Dates: start: 201601, end: 201601
  2. NITROUS OXIDE. [Suspect]
     Active Substance: NITROUS OXIDE
     Indication: DRUG ABUSE
     Dosage: RESPIRATORY
     Route: 055
     Dates: start: 201601, end: 201601

REACTIONS (7)
  - Drug abuse [None]
  - Alcohol use [None]
  - Fall [None]
  - Asphyxia [None]
  - Loss of consciousness [None]
  - Seizure [None]
  - Pulmonary oedema [None]

NARRATIVE: CASE EVENT DATE: 201601
